FAERS Safety Report 7864808-2 (Version None)
Quarter: 2011Q4

REPORT INFORMATION
  Report Type: 
  Country: None (occurrence: None)
  Receive Date: 20111028
  Receipt Date: 20110729
  Transmission Date: 20120403
  Serious: No
  Sender: FDA-Public Use
  Company Number: US-GLAXOSMITHKLINE-A0860213A

PATIENT
  Age: 46 Year
  Sex: Male

DRUGS (5)
  1. PROTONIX [Concomitant]
  2. ADVAIR DISKUS 100/50 [Suspect]
     Indication: ASTHMA
     Dosage: 1PUFF PER DAY
     Route: 055
     Dates: start: 20100426
  3. ALLEGRA [Concomitant]
  4. SINGULAIR [Concomitant]
  5. NASONEX [Concomitant]

REACTIONS (2)
  - DRUG INEFFECTIVE [None]
  - PRODUCT QUALITY ISSUE [None]
